FAERS Safety Report 24960538 (Version 2)
Quarter: 2025Q2

REPORT INFORMATION
  Report Type: Report from Study
  Country: BR (occurrence: BR)
  Receive Date: 20250212
  Receipt Date: 20250401
  Transmission Date: 20250716
  Serious: Yes (Hospitalization, Other)
  Sender: ELI LILLY AND CO
  Company Number: BR-Merck Healthcare KGaA-2025005650

PATIENT
  Age: 62 Year
  Sex: Male

DRUGS (3)
  1. CETUXIMAB [Suspect]
     Active Substance: CETUXIMAB
     Indication: Colon cancer metastatic
     Dosage: 1120 MG, 2/M
     Route: 042
     Dates: start: 20221214
  2. CETUXIMAB [Suspect]
     Active Substance: CETUXIMAB
     Dosage: 1120 MG, 2/M
     Route: 042
     Dates: start: 20230404
  3. CAPECITABINE [Suspect]
     Active Substance: CAPECITABINE
     Indication: Colon cancer metastatic
     Route: 048
     Dates: start: 20230213

REACTIONS (8)
  - Intestinal perforation [Unknown]
  - Intestinal obstruction [Unknown]
  - Colectomy [Unknown]
  - Immunodeficiency [Unknown]
  - Platelet count decreased [Unknown]
  - Weight decreased [Unknown]
  - Malignant neoplasm progression [Unknown]
  - Off label use [Unknown]

NARRATIVE: CASE EVENT DATE: 20221214
